FAERS Safety Report 23262306 (Version 9)
Quarter: 2025Q1

REPORT INFORMATION
  Report Type: Report from Study
  Country: CO (occurrence: CO)
  Receive Date: 20231205
  Receipt Date: 20250221
  Transmission Date: 20250409
  Serious: Yes (Disabling, Other)
  Sender: TAKEDA
  Company Number: CO-TAKEDA-2023TUS116058

PATIENT
  Age: 71 Year
  Sex: Male
  Weight: 81 kg

DRUGS (2)
  1. VEDOLIZUMAB [Suspect]
     Active Substance: VEDOLIZUMAB
     Indication: Colitis ulcerative
  2. VEDOLIZUMAB [Suspect]
     Active Substance: VEDOLIZUMAB

REACTIONS (18)
  - Suicidal ideation [Unknown]
  - Colitis ulcerative [Not Recovered/Not Resolved]
  - Haematochezia [Not Recovered/Not Resolved]
  - Anal incontinence [Unknown]
  - Fear [Unknown]
  - Anxiety [Unknown]
  - Food aversion [Unknown]
  - Weight decreased [Unknown]
  - Mobility decreased [Unknown]
  - Depression [Unknown]
  - Mucous stools [Unknown]
  - Diarrhoea [Unknown]
  - Faeces hard [Unknown]
  - Frequent bowel movements [Not Recovered/Not Resolved]
  - Incorrect route of product administration [Unknown]
  - Decreased appetite [Unknown]
  - Abdominal pain [Not Recovered/Not Resolved]
  - Flatulence [Unknown]

NARRATIVE: CASE EVENT DATE: 20240319
